FAERS Safety Report 8122842-1 (Version None)
Quarter: 2012Q1

REPORT INFORMATION
  Report Type: 
  Country: None (occurrence: None)
  Receive Date: 20120208
  Receipt Date: 20120131
  Transmission Date: 20120608
  Serious: Yes (Other)
  Sender: FDA-Public Use
  Company Number: AU-BAYER-2012-008918

PATIENT
  Age: 22 Year
  Sex: Female

DRUGS (1)
  1. MIRENA [Suspect]
     Indication: CONTRACEPTION
     Dosage: 20 MCG/24HR, CONT
     Route: 015
     Dates: start: 20110506, end: 20120101

REACTIONS (9)
  - PROCEDURAL PAIN [None]
  - LOSS OF CONSCIOUSNESS [None]
  - PAIN [None]
  - GENITAL HAEMORRHAGE [None]
  - WEIGHT DECREASED [None]
  - DEVICE DISLOCATION [None]
  - FATIGUE [None]
  - PROCEDURAL HAEMORRHAGE [None]
  - ASTHENIA [None]
